FAERS Safety Report 11069030 (Version 2)
Quarter: 2015Q2

REPORT INFORMATION
  Report Type: Spontaneous
  Country: US (occurrence: US)
  Receive Date: 20150427
  Receipt Date: 20150505
  Transmission Date: 20150821
  Serious: No
  Sender: FDA-Public Use
  Company Number: US-PFIZER INC-2015011249

PATIENT
  Age: 72 Year
  Sex: Female
  Weight: 68 kg

DRUGS (1)
  1. LYRICA [Suspect]
     Active Substance: PREGABALIN
     Indication: NEUROPATHY PERIPHERAL
     Dosage: 75 MG, DAILY (25 MG OF AM 50 MG OF PM)

REACTIONS (1)
  - Drug ineffective [Unknown]
